FAERS Safety Report 5642196-X (Version None)
Quarter: 2008Q1

REPORT INFORMATION
  Report Type: 
  Country: None (occurrence: None)
  Receive Date: 20080225
  Receipt Date: 20080216
  Transmission Date: 20080703
  Serious: Yes (Other)
  Sender: FDA-Public Use
  Company Number: 2008AP000468

PATIENT
  Age: 48 Year
  Sex: Male

DRUGS (3)
  1. SELEGILINE HCL [Suspect]
     Indication: PARKINSON'S DISEASE
     Dosage: 5 MG
  2. ROPINIROLE HCL [Suspect]
     Indication: PARKINSON'S DISEASE
     Dosage: 24 MG; QD
  3. LEVODOPA [Suspect]
     Indication: PARKINSON'S DISEASE
     Dosage: 300 MG; QD

REACTIONS (1)
  - OBSESSIVE-COMPULSIVE DISORDER [None]
